FAERS Safety Report 8130884-5 (Version None)
Quarter: 2012Q1

REPORT INFORMATION
  Report Type: 
  Country: None (occurrence: None)
  Receive Date: 20120213
  Receipt Date: 20120209
  Transmission Date: 20120608
  Serious: No
  Sender: FDA-Public Use
  Company Number: US-PFIZER INC-2012036827

PATIENT
  Sex: Female
  Weight: 62.132 kg

DRUGS (5)
  1. NORVASC [Concomitant]
     Indication: HYPERTENSION
     Dosage: UNK
  2. METOPROLOL [Concomitant]
     Dosage: UNK
  3. JANUVIA [Concomitant]
     Dosage: UNK
  4. PLAVIX [Concomitant]
     Dosage: UNK
  5. NICOTROL [Suspect]
     Indication: SMOKING CESSATION THERAPY
     Dosage: UNK
     Route: 045
     Dates: start: 20110101, end: 20110101

REACTIONS (7)
  - SNEEZING [None]
  - BLOOD CHOLESTEROL INCREASED [None]
  - HYPERSENSITIVITY [None]
  - DRUG INEFFECTIVE [None]
  - NERVOUSNESS [None]
  - LACRIMATION INCREASED [None]
  - BURNING SENSATION [None]
